FAERS Safety Report 6155241-2 (Version None)
Quarter: 2009Q2

REPORT INFORMATION
  Report Type: 
  Country: None (occurrence: None)
  Receive Date: 20090415
  Receipt Date: 20090407
  Transmission Date: 20091009
  Serious: Yes (Other)
  Sender: FDA-Public Use
  Company Number: PHHY2009FR08194

PATIENT
  Sex: Male

DRUGS (3)
  1. ZOMETA [Suspect]
     Indication: METASTASES TO BONE
     Dosage: 1 DF, QMO
     Dates: start: 20080902, end: 20081216
  2. ZOLADEX [Concomitant]
     Dosage: 5 MG EVERY 3 MONTHS
     Route: 058
  3. TAXOTERE [Concomitant]
     Dosage: UNK
     Dates: start: 20080901, end: 20081216

REACTIONS (7)
  - BONE DISORDER [None]
  - IMPAIRED HEALING [None]
  - INFECTION [None]
  - OSTEONECROSIS [None]
  - PROSTATIC SPECIFIC ANTIGEN INCREASED [None]
  - TOOTH DISORDER [None]
  - TOOTH EXTRACTION [None]
